FAERS Safety Report 8203421-4 (Version None)
Quarter: 2012Q1

REPORT INFORMATION
  Report Type: 
  Country: None (occurrence: None)
  Receive Date: 20120313
  Receipt Date: 20120229
  Transmission Date: 20120608
  Serious: Yes (Hospitalization)
  Sender: FDA-Public Use
  Company Number: FR-BRISTOL-MYERS SQUIBB COMPANY-16430019

PATIENT
  Age: 80 Year
  Sex: Male

DRUGS (7)
  1. GLYBURIDE [Suspect]
     Indication: TYPE 2 DIABETES MELLITUS
     Route: 048
     Dates: end: 20120207
  2. GLUCOPHAGE [Suspect]
     Indication: TYPE 2 DIABETES MELLITUS
     Route: 048
     Dates: end: 20120207
  3. ISOPTIN [Concomitant]
  4. ASPIRIN [Concomitant]
  5. NEXIUM [Concomitant]
  6. LASIX [Suspect]
     Route: 048
  7. ATORVASTATIN [Suspect]
     Indication: ATHEROSCLEROSIS PROPHYLAXIS
     Route: 048

REACTIONS (1)
  - PANCREATITIS [None]
